FAERS Safety Report 18629611 (Version 1)
Quarter: 2020Q4

REPORT INFORMATION
  Report Type: Spontaneous
  Country: US (occurrence: US)
  Receive Date: 20201217
  Receipt Date: 20201217
  Transmission Date: 20210114
  Serious: Yes (Other)
  Sender: FDA-Public Use
  Company Number: US-LANNETT COMPANY, INC.-US-2020LAN000328

PATIENT
  Sex: Female

DRUGS (1)
  1. PANTOPRAZOLE SODIUM. [Suspect]
     Active Substance: PANTOPRAZOLE SODIUM
     Indication: DYSPEPSIA
     Dosage: UNK
     Route: 065

REACTIONS (8)
  - Gastrointestinal disorder [Unknown]
  - Anaphylactoid reaction [Unknown]
  - Dysbiosis [Unknown]
  - Tremor [Unknown]
  - Gastrointestinal obstruction [Unknown]
  - Pain [Unknown]
  - Drug hypersensitivity [Unknown]
  - Suspected product contamination [Unknown]
